FAERS Safety Report 7827536-5 (Version None)
Quarter: 2011Q4

REPORT INFORMATION
  Report Type: 
  Country: None (occurrence: None)
  Receive Date: 20111020
  Receipt Date: 20111018
  Transmission Date: 20120403
  Serious: No
  Sender: FDA-Public Use
  Company Number: NZ-SANOFI-AVENTIS-2011SA043144

PATIENT
  Age: 21 Year
  Sex: Female

DRUGS (4)
  1. ARAVA [Suspect]
     Indication: RHEUMATOID ARTHRITIS
     Route: 065
     Dates: start: 20080601, end: 20100920
  2. ARAVA [Suspect]
     Route: 048
     Dates: start: 20110216, end: 20110411
  3. METHOTREXATE [Concomitant]
     Indication: RHEUMATOID ARTHRITIS
     Route: 048
     Dates: start: 20070101, end: 20110411
  4. ETANERCEPT [Concomitant]
     Indication: RHEUMATOID ARTHRITIS
     Dates: start: 20101101, end: 20110411

REACTIONS (1)
  - MATERNAL EXPOSURE DURING PREGNANCY [None]
